FAERS Safety Report 10225300 (Version 2)
Quarter: 2014Q2

REPORT INFORMATION
  Report Type: Spontaneous
  Country: JP (occurrence: JP)
  Receive Date: 20140609
  Receipt Date: 20140630
  Transmission Date: 20141212
  Serious: Yes (Other)
  Sender: FDA-Public Use
  Company Number: JP-JNJFOC-20140520243

PATIENT
  Sex: 0

DRUGS (1)
  1. ONEDURO [Suspect]
     Indication: PAIN
     Route: 062
     Dates: start: 201402

REACTIONS (3)
  - Withdrawal syndrome [Recovered/Resolved]
  - Treatment noncompliance [Unknown]
  - Somnolence [Recovered/Resolved]
